FAERS Safety Report 16534580 (Version 2)
Quarter: 2019Q3

REPORT INFORMATION
  Report Type: Spontaneous
  Country: US (occurrence: US)
  Receive Date: 20190705
  Receipt Date: 20190722
  Transmission Date: 20191004
  Serious: Yes (Other)
  Sender: FDA-Public Use
  Company Number: US-AUROBINDO-AUR-APL-2019-038402

PATIENT

DRUGS (1)
  1. GABAPENTIN 100MG [Suspect]
     Active Substance: GABAPENTIN
     Indication: NEURALGIA
     Dosage: UNK
     Route: 065
     Dates: start: 20181123, end: 20190427

REACTIONS (41)
  - Major depression [Unknown]
  - Eye movement disorder [Unknown]
  - Anger [Unknown]
  - Mood altered [Unknown]
  - Dyspnoea [Unknown]
  - Thinking abnormal [Unknown]
  - Dry mouth [Unknown]
  - Dysarthria [Unknown]
  - Agitation [Unknown]
  - Anxiety [Unknown]
  - Clumsiness [Unknown]
  - Balance disorder [Unknown]
  - Imprisonment [Unknown]
  - Mania [Unknown]
  - Mental status changes [Unknown]
  - Throat irritation [Unknown]
  - Libido decreased [Unknown]
  - Fatigue [Unknown]
  - Restlessness [Unknown]
  - Toxicity to various agents [Unknown]
  - Diarrhoea [Unknown]
  - Diplopia [Unknown]
  - Dry throat [Unknown]
  - Weight increased [Unknown]
  - Aggression [Unknown]
  - Fluid retention [Unknown]
  - Asthenia [Unknown]
  - Constipation [Unknown]
  - Confusional state [Unknown]
  - Headache [Unknown]
  - Crying [Unknown]
  - Somnolence [Unknown]
  - Cough [Unknown]
  - Insomnia [Unknown]
  - Amnesia [Unknown]
  - Contusion [Unknown]
  - Depression [Unknown]
  - Dizziness [Unknown]
  - Pulmonary function test decreased [Unknown]
  - Myalgia [Unknown]
  - Irritability [Unknown]
